FAERS Safety Report 4384849-X (Version None)
Quarter: 2004Q2

REPORT INFORMATION
  Report Type: 
  Country: None (occurrence: None)
  Receive Date: 20040621
  Receipt Date: 20040607
  Transmission Date: 20050107
  Serious: Yes (Other)
  Sender: FDA-Public Use
  Company Number: 2004-UK-00543UK

PATIENT
  Age: 52 Year
  Sex: Female

DRUGS (9)
  1. SPIRIVA [Suspect]
     Indication: CHRONIC OBSTRUCTIVE AIRWAYS DISEASE
     Dosage: 18 MCG (18 MCG,) IH
     Route: 055
     Dates: start: 20040504, end: 20040508
  2. FEMOSTON (NR) [Concomitant]
  3. SALBUTAMOL (SALBUTAMOL) (NR) [Concomitant]
  4. CETIRIZINE (CETIRIZINE) (NR) [Concomitant]
  5. BENDROFLUAZIDE (BENDROFLUMETHIAZIDE) (NR) [Concomitant]
  6. COMBIVENT (COMBIVENT) (NR) [Concomitant]
  7. SERETIDE (NR) [Concomitant]
  8. THEOPHYLLINE (NR) [Concomitant]
  9. UNIVER (VERAPAMIL HYDROCHLORIDE) (NR) [Concomitant]

REACTIONS (1)
  - BRONCHOSPASM [None]
